FAERS Safety Report 22336874 (Version 1)
Quarter: 2023Q2

REPORT INFORMATION
  Report Type: Spontaneous
  Country: US (occurrence: None)
  Receive Date: 20230517
  Receipt Date: 20230517
  Transmission Date: 20230722
  Serious: No
  Sender: FDA-Public Use
  Company Number: None

PATIENT
  Age: 83 Year
  Sex: Male
  Weight: 57.6 kg

DRUGS (4)
  1. MEMANTINE [Suspect]
     Active Substance: MEMANTINE
     Indication: Drug therapy
     Dosage: OTHER QUANTITY : 1 TABLET(S);?FREQUENCY : TWICE A DAY;?
     Route: 048
     Dates: start: 20230510, end: 20230513
  2. Gabapenton [Concomitant]
  3. Lexipro [Concomitant]
  4. Adult multi [Concomitant]

REACTIONS (4)
  - Fatigue [None]
  - Disturbance in attention [None]
  - Diplopia [None]
  - Impaired driving ability [None]

NARRATIVE: CASE EVENT DATE: 20230514
